FAERS Safety Report 10260974 (Version 1)
Quarter: 2014Q2

REPORT INFORMATION
  Report Type: Spontaneous
  Country: US (occurrence: US)
  Receive Date: 20140626
  Receipt Date: 20140626
  Transmission Date: 20141212
  Serious: Yes (Other)
  Sender: FDA-Public Use
  Company Number: US-PFIZER INC-2014172842

PATIENT
  Age: 55 Year
  Sex: Female
  Weight: 57.1 kg

DRUGS (1)
  1. PREMARIN [Suspect]
     Indication: OESTROGEN REPLACEMENT THERAPY
     Dosage: 1 G, TWO TO THREE TIMES IN A WEEK
     Route: 067
     Dates: start: 2013, end: 201406

REACTIONS (2)
  - Urinary tract infection bacterial [Unknown]
  - Malaise [Unknown]
